FAERS Safety Report 8132479-6 (Version None)
Quarter: 2012Q1

REPORT INFORMATION
  Report Type: 
  Country: None (occurrence: None)
  Receive Date: 20120208
  Receipt Date: 20120126
  Transmission Date: 20120608
  Serious: Yes (Death, Hospitalization)
  Sender: FDA-Public Use
  Company Number: 1000027328

PATIENT
  Age: 86 Year
  Sex: Female

DRUGS (6)
  1. MEMANTINE HYDROCHLORIDE [Suspect]
     Indication: DEMENTIA ALZHEIMER'S TYPE
     Dosage: 5 MG (5 MG, 1 IN 1 D), ORAL
     Route: 048
     Dates: start: 20111226, end: 20120107
  2. YODEL-S (SENNA ALEXANDRINA) (SENNA ALEXANDRINA) [Concomitant]
  3. MAGLAX (MAGNESIUM OXIDE) (MAGNESIUM OXIDE) [Concomitant]
  4. MAO-BUSHI-SAISHIN-TO (HERBAL EXTRACT NOS) (HERBAL EXTRACT NOS) [Concomitant]
  5. ARICEPT [Concomitant]
  6. ADALAT (NIFEDIPINE) (NIFEDIPINE) [Concomitant]

REACTIONS (3)
  - VOMITING [None]
  - ILEUS [None]
  - CONSTIPATION [None]
